FAERS Safety Report 21813580 (Version 1)
Quarter: 2023Q1

REPORT INFORMATION
  Report Type: Report from Study
  Country: CA (occurrence: CA)
  Receive Date: 20230103
  Receipt Date: 20230103
  Transmission Date: 20230418
  Serious: Yes (Other)
  Sender: FDA-Public Use
  Company Number: CA-JNJFOC-20221204686

PATIENT
  Age: 43 Year
  Sex: Male
  Weight: 84 kg

DRUGS (1)
  1. SIMPONI [Suspect]
     Active Substance: GOLIMUMAB
     Indication: Crohn^s disease
     Route: 058

REACTIONS (4)
  - Haematochezia [Not Recovered/Not Resolved]
  - Diarrhoea [Not Recovered/Not Resolved]
  - Abdominal pain [Recovering/Resolving]
  - General physical health deterioration [Unknown]

NARRATIVE: CASE EVENT DATE: 20221130
